FAERS Safety Report 19123717 (Version 1)
Quarter: 2021Q2

REPORT INFORMATION
  Report Type: Spontaneous
  Country: GB (occurrence: GB)
  Receive Date: 20210412
  Receipt Date: 20210412
  Transmission Date: 20210717
  Serious: Yes (Disabling)
  Sender: FDA-Public Use
  Company Number: GB-MYLANLABS-2021M1021694

PATIENT
  Age: 24 Year
  Sex: Male

DRUGS (10)
  1. TEMAZEPAM. [Suspect]
     Active Substance: TEMAZEPAM
     Indication: POOR QUALITY SLEEP
     Dosage: 10 MILLIGRAM, QD
     Route: 048
  2. SERTRALINE [Suspect]
     Active Substance: SERTRALINE HYDROCHLORIDE
     Dosage: 100 MILLIGRAM
  3. ESCITALOPRAM [Suspect]
     Active Substance: ESCITALOPRAM OXALATE
     Indication: ANTIDEPRESSANT THERAPY
     Dosage: 10 MG DAILY
     Route: 048
     Dates: start: 201507, end: 201509
  4. MIRTAZAPINE. [Suspect]
     Active Substance: MIRTAZAPINE
     Indication: ANTIDEPRESSANT THERAPY
     Dosage: 7.5MG ? UPTITRATED YO 45MG DAILY THEN REDUCED TDOWN TO STOP
     Route: 048
     Dates: start: 2014, end: 2015
  5. RISPERIDONE. [Suspect]
     Active Substance: RISPERIDONE
     Indication: ILL-DEFINED DISORDER
     Dosage: UNK
     Route: 048
  6. SERTRALINE [Suspect]
     Active Substance: SERTRALINE HYDROCHLORIDE
     Indication: ANTIDEPRESSANT THERAPY
     Dosage: 50 MILLIGRAM
     Dates: start: 2014
  7. TRAZODONE [Suspect]
     Active Substance: TRAZODONE HYDROCHLORIDE
     Dosage: 50 MILLIGRAM
     Dates: end: 201507
  8. CITALOPRAM [Suspect]
     Active Substance: CITALOPRAM HYDROBROMIDE
     Indication: ILL-DEFINED DISORDER
     Dosage: 10 MG INITIALLY
     Route: 048
     Dates: start: 201507
  9. TRAZODONE [Suspect]
     Active Substance: TRAZODONE HYDROCHLORIDE
     Indication: ANTIDEPRESSANT THERAPY
     Dosage: 50 MILLIGRAM
     Route: 048
     Dates: start: 2015
  10. TRAZODONE [Suspect]
     Active Substance: TRAZODONE HYDROCHLORIDE
     Dosage: 100 MILLIGRAM

REACTIONS (6)
  - Homicidal ideation [Unknown]
  - Agitation [Unknown]
  - Suicidal ideation [Unknown]
  - Mood swings [Unknown]
  - Anger [Unknown]
  - Somnolence [Unknown]
